FAERS Safety Report 12565755 (Version 2)
Quarter: 2016Q3

REPORT INFORMATION
  Report Type: Spontaneous
  Country: GB (occurrence: GB)
  Receive Date: 20160718
  Receipt Date: 20160720
  Transmission Date: 20161109
  Serious: Yes (Other)
  Sender: FDA-Public Use
  Company Number: GB-CONCORDIA PHARMACEUTICALS INC.-GSH201607-003498

PATIENT
  Sex: Female

DRUGS (5)
  1. CO-CODAMOL EFFERVESCENT [Concomitant]
     Indication: FIBROMYALGIA
  2. MORPHINE [Concomitant]
     Active Substance: MORPHINE
     Indication: SPINAL PAIN
     Route: 048
  3. VENTOLIN [Concomitant]
     Active Substance: ALBUTEROL SULFATE
     Indication: ASTHMA
  4. CETIRIZINE [Concomitant]
     Active Substance: CETIRIZINE HYDROCHLORIDE
  5. PREDNISOLONE. [Suspect]
     Active Substance: PREDNISOLONE
     Indication: HYPERSENSITIVITY
     Route: 048

REACTIONS (12)
  - Dizziness [Unknown]
  - Dry mouth [Unknown]
  - Hypersensitivity [Not Recovered/Not Resolved]
  - Dyspnoea [Recovering/Resolving]
  - Pyrexia [Unknown]
  - Head discomfort [Unknown]
  - Renal pain [Not Recovered/Not Resolved]
  - Malaise [Not Recovered/Not Resolved]
  - Dysphonia [Unknown]
  - Renal disorder [Not Recovered/Not Resolved]
  - Chest discomfort [Recovering/Resolving]
  - Dry throat [Unknown]
